FAERS Safety Report 9261656 (Version 2)
Quarter: 2013Q3

REPORT INFORMATION
  Report Type: Spontaneous
  Country: US (occurrence: US)
  Receive Date: 20130429
  Receipt Date: 20130723
  Transmission Date: 20140515
  Serious: Yes (Death, Hospitalization)
  Sender: FDA-Public Use
  Company Number: US-B.I. PHARMACEUTICALS,INC./RIDGEFIELD-2013-BI-11728BP

PATIENT
  Age: 64 Year
  Sex: Female
  Weight: 93.89 kg

DRUGS (9)
  1. PRADAXA [Suspect]
     Indication: ANTICOAGULANT THERAPY
     Dosage: 300 MG
     Dates: start: 20110714, end: 20111203
  2. PRADAXA [Suspect]
     Indication: ATRIAL FIBRILLATION
  3. LANTUS [Concomitant]
     Dosage: 25 U
     Dates: start: 2000, end: 2011
  4. SYNTHROID [Concomitant]
     Dosage: 0.1 MG
     Dates: start: 1997, end: 2011
  5. PRAVASTATIN [Concomitant]
     Dosage: 20 MG
     Dates: start: 2006, end: 2011
  6. LISINOPRIL [Concomitant]
     Dosage: 5 MG
     Dates: start: 2004, end: 2011
  7. ATENOLOL [Concomitant]
     Dosage: 12.5 MG
  8. BACTRIM DS [Concomitant]
     Indication: URINARY TRACT INFECTION
     Dates: start: 20111201
  9. OXYBUTYNIN [Concomitant]
     Dates: start: 20111121

REACTIONS (6)
  - Upper gastrointestinal haemorrhage [Fatal]
  - Lower gastrointestinal haemorrhage [Fatal]
  - Shock haemorrhagic [Unknown]
  - Disseminated intravascular coagulation [Unknown]
  - Coagulopathy [Unknown]
  - Thrombocytopenia [Unknown]
